FAERS Safety Report 16562424 (Version 4)
Quarter: 2019Q4

REPORT INFORMATION
  Report Type: Spontaneous
  Country: US (occurrence: US)
  Receive Date: 20190711
  Receipt Date: 20191031
  Transmission Date: 20200122
  Serious: Yes (Hospitalization, Other)
  Sender: FDA-Public Use
  Company Number: US-009507513-1907USA001910

PATIENT
  Age: 67 Year
  Sex: Female
  Weight: 54.9 kg

DRUGS (16)
  1. REMERON [Suspect]
     Active Substance: MIRTAZAPINE
     Indication: DEPRESSION
     Dosage: 15 MILLIGRAM
     Route: 048
     Dates: end: 20181201
  2. REMERON [Suspect]
     Active Substance: MIRTAZAPINE
     Dosage: 15 MILLIGRAM (1 PER DAY AT BED TIME)
     Route: 048
  3. STALEVO [Interacting]
     Active Substance: CARBIDOPA\ENTACAPONE\LEVODOPA
     Dosage: 100 MILLIGRAM
     Dates: end: 20180523
  4. ZOLEDRONIC ACID [Concomitant]
     Active Substance: ZOLEDRONIC ACID
  5. REMERON [Suspect]
     Active Substance: MIRTAZAPINE
     Indication: ANXIETY
     Dosage: 30 MILLIGRAM
     Route: 048
     Dates: start: 20181201
  6. CARBIDOPA (+) LEVODOPA [Concomitant]
     Active Substance: CARBIDOPA\LEVODOPA
     Dosage: 50-200 MG
  7. STALEVO [Interacting]
     Active Substance: CARBIDOPA\ENTACAPONE\LEVODOPA
     Dosage: 125 MILLIGRAM
     Dates: start: 20180523, end: 201807
  8. AMANTADINE. [Interacting]
     Active Substance: AMANTADINE HYDROCHLORIDE
     Indication: DYSKINESIA
     Dosage: 137 MILLIGRAMS, 1XDAY AT BEDTIME
     Route: 048
     Dates: start: 20180516, end: 20180530
  9. AMANTADINE. [Interacting]
     Active Substance: AMANTADINE HYDROCHLORIDE
     Dosage: 274 MG, 1XDAY AT BEDTIME
     Route: 048
     Dates: start: 20180531, end: 20181227
  10. AMANTADINE. [Interacting]
     Active Substance: AMANTADINE HYDROCHLORIDE
     Dosage: 137 MG, 1XDAY AT BEDTIME
     Route: 048
     Dates: start: 20190108, end: 2019
  11. AMANTADINE. [Interacting]
     Active Substance: AMANTADINE HYDROCHLORIDE
     Dosage: 274 MG, 1XDAY AT BEDTIME
     Route: 048
     Dates: start: 20190603
  12. STALEVO [Interacting]
     Active Substance: CARBIDOPA\ENTACAPONE\LEVODOPA
     Dosage: UNK
  13. STALEVO [Interacting]
     Active Substance: CARBIDOPA\ENTACAPONE\LEVODOPA
     Dosage: 150 MILLIGRAM
     Dates: start: 201807
  14. RASAGILINE MESYLATE. [Concomitant]
     Active Substance: RASAGILINE MESYLATE
     Dosage: 1 MILLIGRAM
  15. MELATONIN [Concomitant]
     Active Substance: MELATONIN
  16. CALCIUM (UNSPECIFIED) (+) VITAMIN D (UNSPECIFIED) [Concomitant]
     Active Substance: CALCIUM CARBONATE\VITAMIN D
     Dosage: 600 MILLIGRAM

REACTIONS (28)
  - Cerebral haemorrhage [Unknown]
  - Fall [Recovered/Resolved]
  - Fatigue [Not Recovered/Not Resolved]
  - Femoral neck fracture [Recovered/Resolved]
  - Dizziness postural [Unknown]
  - Paraesthesia [Not Recovered/Not Resolved]
  - Drug level above therapeutic [Unknown]
  - Product use in unapproved indication [Unknown]
  - Leukocytosis [Unknown]
  - Drug interaction [Unknown]
  - Constipation [Unknown]
  - Hip fracture [Recovered/Resolved]
  - Respiratory depression [Recovered/Resolved]
  - Throat lesion [Unknown]
  - Feeding disorder [Recovering/Resolving]
  - Hypotonia [Recovering/Resolving]
  - Dry mouth [Unknown]
  - Dysphagia [Unknown]
  - Feeling abnormal [Unknown]
  - Inappropriate antidiuretic hormone secretion [Recovered/Resolved]
  - Asthenia [Not Recovered/Not Resolved]
  - Antidepressant drug level above therapeutic [Unknown]
  - Hyponatraemia [Recovered/Resolved]
  - Weight decreased [Recovering/Resolving]
  - Hyponatraemic encephalopathy [Recovered/Resolved]
  - Failure to thrive [Recovering/Resolving]
  - Hypokalaemia [Unknown]
  - Flatulence [Unknown]

NARRATIVE: CASE EVENT DATE: 2018
